FAERS Safety Report 6546110-4 (Version None)
Quarter: 2010Q1

REPORT INFORMATION
  Report Type: 
  Country: None (occurrence: None)
  Receive Date: 20100122
  Receipt Date: 20100113
  Transmission Date: 20100710
  Serious: Yes (Hospitalization)
  Sender: FDA-Public Use
  Company Number: US-BIOGENIDEC-2009BI007394

PATIENT
  Age: 58 Year
  Sex: Female

DRUGS (2)
  1. AVONEX [Suspect]
     Indication: MULTIPLE SCLEROSIS
     Route: 030
     Dates: start: 20070605
  2. AVONEX [Suspect]
     Route: 030

REACTIONS (4)
  - FALL [None]
  - FEMUR FRACTURE [None]
  - PATELLA FRACTURE [None]
  - SEDATION [None]
